FAERS Safety Report 21886466 (Version 1)
Quarter: 2023Q1

REPORT INFORMATION
  Report Type: Spontaneous
  Country: US (occurrence: US)
  Receive Date: 20230119
  Receipt Date: 20230119
  Transmission Date: 20230418
  Serious: No
  Sender: FDA-Public Use
  Company Number: US-BRISTOL-MYERS SQUIBB COMPANY-2023-009139

PATIENT
  Age: 58 Year
  Sex: Male
  Weight: 157 kg

DRUGS (3)
  1. ELIQUIS [Suspect]
     Active Substance: APIXABAN
     Indication: Deep vein thrombosis
     Route: 048
     Dates: start: 20221223
  2. ELIQUIS [Suspect]
     Active Substance: APIXABAN
     Indication: Pulmonary embolism
  3. ASPIRIN [Concomitant]
     Active Substance: ASPIRIN
     Indication: Product used for unknown indication

REACTIONS (1)
  - Dyspnoea [Unknown]

NARRATIVE: CASE EVENT DATE: 20230118
